FAERS Safety Report 9539200 (Version 3)
Quarter: 2013Q4

REPORT INFORMATION
  Report Type: Spontaneous
  Country: IT (occurrence: IT)
  Receive Date: 20130920
  Receipt Date: 20131121
  Transmission Date: 20140711
  Serious: Yes (Life-Threatening)
  Sender: FDA-Public Use
  Company Number: IT-BRACCO-002806

PATIENT
  Age: 60 Year
  Sex: Female

DRUGS (1)
  1. IOPAMIRO [Suspect]
     Indication: COMPUTERISED TOMOGRAM
     Route: 040
     Dates: start: 20130912, end: 20130912

REACTIONS (1)
  - Respiratory failure [Recovering/Resolving]
